FAERS Safety Report 5023611-1 (Version None)
Quarter: 2006Q2

REPORT INFORMATION
  Report Type: 
  Country: None (occurrence: None)
  Receive Date: 20060428
  Receipt Date: 20060222
  Transmission Date: 20061013
  Serious: No
  Sender: FDA-Public Use
  Company Number: WAES 0602USA05224

PATIENT
  Sex: Female

DRUGS (11)
  1. EMEND [Suspect]
     Indication: NAUSEA
     Dosage: 125 MG/DAILY/PO; SEE IMAGE
     Route: 048
     Dates: start: 20051208, end: 20051208
  2. EMEND [Suspect]
     Indication: NAUSEA
     Dosage: 125 MG/DAILY/PO; SEE IMAGE
     Route: 048
     Dates: start: 20051209, end: 20051210
  3. AMBIEN [Concomitant]
  4. CIS-H-102/09 [Concomitant]
  5. COMPAZINE [Concomitant]
  6. GEMZAR [Concomitant]
  7. LEVOXYL [Concomitant]
  8. PAXIL [Concomitant]
  9. XANAX [Concomitant]
  10. ZOFRAN [Concomitant]
  11. ZYRTEC [Concomitant]

REACTIONS (1)
  - PSYCHOTIC DISORDER [None]
